FAERS Safety Report 10233487 (Version 3)
Quarter: 2014Q4

REPORT INFORMATION
  Report Type: Report from Study
  Country: SI (occurrence: SI)
  Receive Date: 20140612
  Receipt Date: 20141203
  Transmission Date: 20150528
  Serious: Yes (Hospitalization, Other)
  Sender: FDA-Public Use
  Company Number: PHHY2014SI070796

PATIENT
  Sex: Female

DRUGS (2)
  1. EXTAVIA [Suspect]
     Active Substance: INTERFERON BETA-1B
     Dosage: 1 ML,  48 HOURS QOD
     Route: 058
     Dates: start: 20141121, end: 20141121
  2. EXTAVIA [Suspect]
     Active Substance: INTERFERON BETA-1B
     Indication: MULTIPLE SCLEROSIS
     Dosage: 1 ML, QOD (EVERY 48 HOURS)
     Route: 058
     Dates: start: 201005

REACTIONS (13)
  - Gait disturbance [Unknown]
  - Paraesthesia [Recovered/Resolved]
  - Drug intolerance [Unknown]
  - Fall [Unknown]
  - Inflammation [Not Recovered/Not Resolved]
  - Injection site inflammation [Not Recovered/Not Resolved]
  - Injection site erythema [Unknown]
  - Injection site pain [Not Recovered/Not Resolved]
  - Femur fracture [Recovering/Resolving]
  - Injection site discolouration [Unknown]
  - Multiple sclerosis relapse [Recovered/Resolved]
  - Injection site induration [Not Recovered/Not Resolved]
  - Pain [Unknown]

NARRATIVE: CASE EVENT DATE: 201005
